FAERS Safety Report 4895307-8 (Version None)
Quarter: 2006Q1

REPORT INFORMATION
  Report Type: 
  Country: None (occurrence: None)
  Receive Date: 20060130
  Receipt Date: 20060119
  Transmission Date: 20060701
  Serious: Yes (Disabling)
  Sender: FDA-Public Use
  Company Number: US-MERCK-0601USA02448

PATIENT
  Age: 39 Year
  Sex: Male

DRUGS (1)
  1. VIOXX [Suspect]
     Indication: ARTHROPATHY
     Route: 048
     Dates: start: 19990101

REACTIONS (4)
  - ANHEDONIA [None]
  - CEREBROVASCULAR ACCIDENT [None]
  - DRUG INEFFECTIVE [None]
  - INJURY [None]
